FAERS Safety Report 6651955-6 (Version None)
Quarter: 2010Q1

REPORT INFORMATION
  Report Type: 
  Country: None (occurrence: None)
  Receive Date: 20100325
  Receipt Date: 20100317
  Transmission Date: 20100710
  Serious: Yes (Hospitalization)
  Sender: FDA-Public Use
  Company Number: FR-JNJFOC-20100304871

PATIENT
  Sex: Female

DRUGS (9)
  1. RISPERDAL [Suspect]
     Indication: PARANOIA
     Route: 048
     Dates: start: 20091110
  2. COVERSYL [Concomitant]
     Indication: HYPERTENSION
     Route: 065
  3. RIVOTRIL [Concomitant]
     Indication: PARANOIA
     Route: 048
  4. ZOCOR [Concomitant]
     Indication: DEPRESSION
     Route: 048
  5. ACTONEL [Concomitant]
     Indication: OSTEOPOROSIS
     Route: 048
  6. DAFALGAN [Concomitant]
     Indication: PAIN
     Route: 048
  7. EXELON [Concomitant]
     Indication: PARANOIA
     Route: 062
  8. SERESTA [Concomitant]
     Indication: ANXIETY
     Route: 048
  9. CACIT VITAMINE D3 [Concomitant]
     Indication: CALCIUM DEFICIENCY
     Route: 048

REACTIONS (3)
  - DERMATITIS BULLOUS [None]
  - INFLAMMATION [None]
  - OEDEMA PERIPHERAL [None]
